FAERS Safety Report 26153763 (Version 1)
Quarter: 2025Q4

REPORT INFORMATION
  Report Type: Spontaneous
  Country: TH (occurrence: TH)
  Receive Date: 20251214
  Receipt Date: 20251214
  Transmission Date: 20260118
  Serious: Yes (Death, Life-Threatening, Hospitalization)
  Sender: GALPHARM INTERNATIONAL
  Company Number: TH-MLMSERVICE-20251124-PI725290-00029-1

PATIENT
  Age: 22 Year
  Sex: Male

DRUGS (1)
  1. ACETAMINOPHEN [Suspect]
     Active Substance: ACETAMINOPHEN
     Indication: Product used for unknown indication
     Dosage: 40 G, UNKNOWN
     Route: 048

REACTIONS (8)
  - Methaemoglobinaemia [Fatal]
  - Haemolysis [Fatal]
  - Coma [Fatal]
  - Renal impairment [Fatal]
  - Brain herniation [Fatal]
  - Brain oedema [Fatal]
  - Acute hepatic failure [Fatal]
  - Overdose [Fatal]
